FAERS Safety Report 13306397 (Version 1)
Quarter: 2017Q1

REPORT INFORMATION
  Report Type: Spontaneous
  Country: DE (occurrence: DE)
  Receive Date: 20170308
  Receipt Date: 20170308
  Transmission Date: 20170428
  Serious: Yes (Hospitalization)
  Sender: FDA-Public Use
  Company Number: DE-SA-2017SA035241

PATIENT
  Age: 44 Year
  Sex: Male

DRUGS (3)
  1. RAMIPRIL. [Concomitant]
     Active Substance: RAMIPRIL
     Indication: HYPERTENSION
     Route: 048
  2. MICTONORM [Concomitant]
     Active Substance: PROPIVERINE HYDROCHLORIDE
     Indication: NEUROGENIC BLADDER
     Route: 048
  3. LEMTRADA [Suspect]
     Active Substance: ALEMTUZUMAB
     Indication: RELAPSING-REMITTING MULTIPLE SCLEROSIS
     Route: 042
     Dates: start: 20160126, end: 20160130

REACTIONS (6)
  - Somnolence [Recovered/Resolved]
  - Alopecia [Recovered/Resolved]
  - Weight decreased [Recovered/Resolved]
  - Thyroiditis [Not Recovered/Not Resolved]
  - Hyperthyroidism [Not Recovered/Not Resolved]
  - Atrial fibrillation [Recovered/Resolved]

NARRATIVE: CASE EVENT DATE: 20170101
